FAERS Safety Report 9644302 (Version 3)
Quarter: 2014Q1

REPORT INFORMATION
  Report Type: Report from Study
  Country: CA (occurrence: CA)
  Receive Date: 20131025
  Receipt Date: 20140312
  Transmission Date: 20141002
  Serious: Yes (Other)
  Sender: FDA-Public Use
  Company Number: CA-ROCHE-1293451

PATIENT
  Age: 59 Year
  Sex: Female

DRUGS (10)
  1. RITUXAN [Suspect]
     Indication: CHRONIC LYMPHOCYTIC LEUKAEMIA
     Route: 042
     Dates: start: 20130731, end: 20140205
  2. FLUDARA [Suspect]
     Indication: CHRONIC LYMPHOCYTIC LEUKAEMIA
     Route: 065
     Dates: start: 20130731
  3. CYCLOPHOSPHAMIDE [Suspect]
     Indication: CHRONIC LYMPHOCYTIC LEUKAEMIA
     Route: 065
     Dates: start: 20130731
  4. DILANTIN [Concomitant]
     Route: 065
  5. FRAGMIN [Concomitant]
     Route: 065
  6. CYCLOVIRAN [Concomitant]
     Route: 065
  7. DAPSONE [Concomitant]
     Route: 065
  8. TYLENOL [Concomitant]
     Dosage: AS REQUIRED.
     Route: 048
     Dates: start: 20131127
  9. BENDAMUSTINE [Concomitant]
     Route: 065
     Dates: start: 20131125
  10. BENADRYL (CANADA) [Concomitant]
     Route: 048
     Dates: start: 20131127

REACTIONS (4)
  - Thrombosis [Not Recovered/Not Resolved]
  - Neutrophil count decreased [Unknown]
  - Chills [Not Recovered/Not Resolved]
  - Tremor [Not Recovered/Not Resolved]
